FAERS Safety Report 8293389-7 (Version None)
Quarter: 2012Q2

REPORT INFORMATION
  Report Type: 
  Country: None (occurrence: None)
  Receive Date: 20120417
  Receipt Date: 20110825
  Transmission Date: 20120825
  Serious: No
  Sender: FDA-Public Use
  Company Number: US-ASTRAZENECA-2010SE14750

PATIENT
  Age: 68 Year
  Sex: Female
  Weight: 68.5 kg

DRUGS (4)
  1. NEXIUM [Suspect]
     Indication: GASTROOESOPHAGEAL REFLUX DISEASE
     Route: 048
     Dates: start: 20100108
  2. ZOCOR [Concomitant]
     Indication: HYPERCHOLESTEROLAEMIA
  3. XANAX [Concomitant]
     Indication: ANXIETY
  4. HYDROCHLOROTHIAZIDE [Concomitant]
     Indication: HYPERTENSION

REACTIONS (4)
  - PALPITATIONS [None]
  - CHEST DISCOMFORT [None]
  - DRUG DOSE OMISSION [None]
  - GASTROOESOPHAGEAL REFLUX DISEASE [None]
